FAERS Safety Report 12526943 (Version 2)
Quarter: 2016Q4

REPORT INFORMATION
  Report Type: Spontaneous
  Country: US (occurrence: US)
  Receive Date: 20160705
  Receipt Date: 20161110
  Transmission Date: 20170207
  Serious: No
  Sender: FDA-Public Use
  Company Number: US-GLAXOSMITHKLINE-US2016088986

PATIENT
  Sex: Male

DRUGS (1)
  1. FLOVENT [Suspect]
     Active Substance: FLUTICASONE PROPIONATE
     Indication: OESOPHAGEAL DISORDER
     Dosage: UNK
     Route: 048

REACTIONS (3)
  - Drug prescribing error [Unknown]
  - Incorrect route of drug administration [Unknown]
  - Product use issue [Unknown]
